FAERS Safety Report 6829733-4 (Version None)
Quarter: 2010Q3

REPORT INFORMATION
  Report Type: 
  Country: None (occurrence: None)
  Receive Date: 20100709
  Receipt Date: 20070521
  Transmission Date: 20110219
  Serious: No
  Sender: FDA-Public Use
  Company Number: US-PFIZER INC-2007020028

PATIENT
  Sex: Female
  Weight: 48.53 kg

DRUGS (6)
  1. VARENICLINE [Suspect]
     Indication: SMOKING CESSATION THERAPY
     Dates: start: 20070101
  2. TRAZODONE [Concomitant]
  3. FLEXERIL [Concomitant]
  4. NAPROXEN [Concomitant]
  5. LEXAPRO [Concomitant]
     Indication: ANXIETY
  6. NICORETTE [Concomitant]

REACTIONS (2)
  - ASTHENIA [None]
  - DEPRESSION [None]
